FAERS Safety Report 5452042-5 (Version None)
Quarter: 2007Q3

REPORT INFORMATION
  Report Type: 
  Country: None (occurrence: None)
  Receive Date: 20070912
  Receipt Date: 20070830
  Transmission Date: 20080115
  Serious: Yes (Death)
  Sender: FDA-Public Use
  Company Number: CERZ-11874

PATIENT
  Age: 81 Year
  Sex: Female
  Weight: 87.7 kg

DRUGS (1)
  1. CEREZYME [Suspect]
     Indication: GAUCHER'S DISEASE
     Dosage: 2600 UNITS Q4WKS IV
     Route: 042
     Dates: start: 19971101

REACTIONS (1)
  - MULTIPLE MYELOMA [None]
